FAERS Safety Report 26206187 (Version 1)
Quarter: 2025Q4

REPORT INFORMATION
  Report Type: Report from Study
  Country: US (occurrence: US)
  Receive Date: 20251229
  Receipt Date: 20251229
  Transmission Date: 20260118
  Serious: Yes (Other)
  Sender: INSMED
  Company Number: US-INSMED, INC.-2025-09133-US

PATIENT
  Age: 75 Year
  Sex: Female

DRUGS (1)
  1. BRINSUPRI [Suspect]
     Active Substance: BRENSOCATIB
     Indication: Bronchiectasis
     Dosage: 25 MILLIGRAM, QD
     Route: 048
     Dates: start: 20251212

REACTIONS (1)
  - Emergency care [Unknown]

NARRATIVE: CASE EVENT DATE: 20251216
